FAERS Safety Report 9031519 (Version 1)
Quarter: 2013Q1

REPORT INFORMATION
  Report Type: Report from Study
  Country: US (occurrence: US)
  Receive Date: 20130124
  Receipt Date: 20130124
  Transmission Date: 20140127
  Serious: Yes (Hospitalization)
  Sender: FDA-Public Use
  Company Number: US-ROCHE-1180639

PATIENT
  Age: 44 Year
  Sex: Female
  Weight: 106.9 kg

DRUGS (11)
  1. CAPECITABINE [Suspect]
     Indication: BILE DUCT CANCER
     Route: 065
     Dates: start: 20111221, end: 20121226
  2. BEVACIZUMAB [Suspect]
     Indication: BILE DUCT CANCER
     Route: 065
     Dates: start: 20111221, end: 20121218
  3. GEMCITABINE [Suspect]
     Indication: BILE DUCT CANCER
     Route: 065
     Dates: start: 20111221, end: 20121218
  4. MAGIC MOUTHWASH NOS [Concomitant]
     Route: 065
     Dates: start: 201112
  5. DOCUSATE [Concomitant]
  6. SENNOSIDES [Concomitant]
  7. LEVOTHYROXIN [Concomitant]
     Route: 065
     Dates: start: 20130114
  8. LORAZEPAM [Concomitant]
     Route: 065
     Dates: start: 20111216
  9. LACTULOSE [Concomitant]
     Route: 065
     Dates: start: 20120904
  10. OXYCODONE [Concomitant]
  11. ALBUTEROL [Concomitant]
     Route: 065
     Dates: start: 20120925

REACTIONS (1)
  - Venous occlusion [Unknown]
